FAERS Safety Report 7757340-8 (Version None)
Quarter: 2011Q3

REPORT INFORMATION
  Report Type: 
  Country: None (occurrence: None)
  Receive Date: 20110916
  Receipt Date: 20110909
  Transmission Date: 20111222
  Serious: Yes (Hospitalization)
  Sender: FDA-Public Use
  Company Number: DE-BAYER-2011-057975

PATIENT
  Age: 46 Year
  Sex: Female

DRUGS (2)
  1. EXTAVIA [Suspect]
     Indication: MULTIPLE SCLEROSIS
     Dosage: 1 ML, QOD
     Route: 058
     Dates: start: 20110427
  2. VESICARE [Concomitant]
     Indication: BLADDER DISORDER

REACTIONS (5)
  - ANXIETY DISORDER [None]
  - INJECTION SITE PAIN [None]
  - TOOTH DISORDER [None]
  - FATIGUE [None]
  - DIZZINESS [None]
